FAERS Safety Report 5118611-7 (Version None)
Quarter: 2006Q4

REPORT INFORMATION
  Report Type: 
  Country: None (occurrence: None)
  Receive Date: 20061002
  Receipt Date: 20060927
  Transmission Date: 20070319
  Serious: Yes (Hospitalization)
  Sender: FDA-Public Use
  Company Number: US-GLAXOSMITHKLINE-A0621866A

PATIENT
  Sex: Female

DRUGS (3)
  1. COREG [Suspect]
     Dosage: 3.5MG TWICE PER DAY
     Route: 048
  2. LONG ACTING INSULIN [Suspect]
  3. ANTIHYPERTENSIVE [Concomitant]

REACTIONS (2)
  - DIABETES MELLITUS INADEQUATE CONTROL [None]
  - DRUG INTERACTION [None]
